FAERS Safety Report 21707150 (Version 1)
Quarter: 2022Q4

REPORT INFORMATION
  Report Type: Spontaneous
  Country: US (occurrence: US)
  Receive Date: 20221209
  Receipt Date: 20221209
  Transmission Date: 20230113
  Serious: No
  Sender: FDA-Public Use
  Company Number: US-PFIZER INC-202201359505

PATIENT
  Age: 44 Year
  Sex: Female

DRUGS (19)
  1. XELJANZ XR [Suspect]
     Active Substance: TOFACITINIB CITRATE
     Dosage: 11 MG, DAILY
     Route: 048
     Dates: end: 202210
  2. BENZONATATE [Concomitant]
     Active Substance: BENZONATATE
  3. PAXLOVID [Concomitant]
     Active Substance: NIRMATRELVIR\RITONAVIR
  4. METFORMIN [Concomitant]
     Active Substance: METFORMIN HYDROCHLORIDE
  5. TRIAMCINOLONE [Concomitant]
     Active Substance: TRIAMCINOLONE
  6. PREDNISONE [Concomitant]
     Active Substance: PREDNISONE
  7. ALBUTEROL SULFATE [Concomitant]
     Active Substance: ALBUTEROL SULFATE
  8. METHIMAZOLE [Concomitant]
     Active Substance: METHIMAZOLE
  9. METOPROLOL [Concomitant]
     Active Substance: METOPROLOL
  10. LEVOTHYROXINE [Concomitant]
     Active Substance: LEVOTHYROXINE
  11. FOLIC ACID [Concomitant]
     Active Substance: FOLIC ACID
  12. MUPIROCIN [Concomitant]
     Active Substance: MUPIROCIN
  13. LEFLUNOMIDE [Concomitant]
     Active Substance: LEFLUNOMIDE
  14. DICYCLOMINE [Concomitant]
     Active Substance: DICYCLOMINE HYDROCHLORIDE
  15. GENTAMICIN SULFATE [Concomitant]
     Active Substance: GENTAMICIN SULFATE
  16. FLUCONAZOLE [Concomitant]
     Active Substance: FLUCONAZOLE
  17. INDOMETHACIN [Concomitant]
     Active Substance: INDOMETHACIN
  18. METHOTREXATE [Concomitant]
     Active Substance: METHOTREXATE
  19. PROPYLTHIOURACIL [Concomitant]
     Active Substance: PROPYLTHIOURACIL

REACTIONS (1)
  - Drug ineffective [Unknown]

NARRATIVE: CASE EVENT DATE: 20221001
